FAERS Safety Report 20770620 (Version 1)
Quarter: 2022Q2

REPORT INFORMATION
  Report Type: Spontaneous
  Country: DE (occurrence: DE)
  Receive Date: 20220429
  Receipt Date: 20220429
  Transmission Date: 20220721
  Serious: Yes (Other)
  Sender: FDA-Public Use
  Company Number: DE-CELLTRION HEALTHCARE HUNGARY KFT-2020DE024051

PATIENT
  Sex: Female

DRUGS (20)
  1. METHOTREXATE [Suspect]
     Active Substance: METHOTREXATE
     Indication: Prophylaxis
     Dosage: 1.5 MILLIGRAM/SQ. METER, (1.500 MG/M2, 24-HOURS-INFUSION ON DAY 8 POSTNATAL PHASE)
     Route: 042
  2. METHOTREXATE [Suspect]
     Active Substance: METHOTREXATE
     Indication: Burkitt^s lymphoma stage IV
     Dosage: 15 MILLIGRAM, (15 MG, ON DAYS 8 AND 12 POSTNATAL PHASE)
     Route: 037
  3. PREDNISOLONE [Suspect]
     Active Substance: PREDNISOLONE
     Indication: Burkitt^s lymphoma stage IV
     Dosage: 60 MILLIGRAM/SQ. METER, (60 MG/M2 ON DAYS 1-5 POSTNATAL PHASE)
  4. PREDNISOLONE [Suspect]
     Active Substance: PREDNISOLONE
     Dosage: 100 MILLIGRAM, (100 MG, ON DAYS 2-5 PRENATAL PHASE)
     Route: 048
  5. DOXORUBICIN [Suspect]
     Active Substance: DOXORUBICIN
     Indication: Burkitt^s lymphoma stage IV
     Dosage: 50 MILLIGRAM/SQ. METER (OVER 30 MINUTES ON DAY 2)
     Route: 042
  6. DEXAMETHASONE [Suspect]
     Active Substance: DEXAMETHASONE
     Indication: Prophylaxis
     Dosage: 4 MILLIGRAM, (4 MG, ON DAYS 8 AND 12 POSTNATAL PHASE)
     Route: 037
  7. DEXAMETHASONE [Suspect]
     Active Substance: DEXAMETHASONE
     Indication: Burkitt^s lymphoma stage IV
     Dosage: 10 MILLIGRAM/SQ. METER, (10 MG/M2 ON DAYS 11-12 POSTNATAL PHASE)
     Route: 048
  8. DEXAMETHASONE [Suspect]
     Active Substance: DEXAMETHASONE
     Dosage: 4 MILLIGRAM, (4 MG, ON DAYS 2 AND 6 PRENATAL PHASE )
     Route: 037
  9. RITUXIMAB [Suspect]
     Active Substance: RITUXIMAB
     Indication: Burkitt^s lymphoma stage IV
     Dosage: 375 MILLIGRAM/SQ. METER, (375 MG/M2, OVER 3 HOURS ON DAY 1 PRENATAL PHASE)
     Route: 042
  10. RITUXIMAB [Suspect]
     Active Substance: RITUXIMAB
     Dosage: 50 MILLIGRAM/SQ. METER, (OVER 30 MINUTES ON DAY 2)
     Route: 042
  11. IFOSFAMIDE [Suspect]
     Active Substance: IFOSFAMIDE
     Indication: Burkitt^s lymphoma stage IV
     Dosage: 800 MILLIGRAM/SQ. METER, (800 MG/M2 OVER 1-HOUR ON DAYS 8-12 POSTNATAL PHASE)
     Route: 042
  12. MESNA [Suspect]
     Active Substance: MESNA
     Indication: Burkitt^s lymphoma stage IV
     Dosage: 200 MILLIGRAM/SQ. METER, (200 MG/M2, AT 0, 4, AND 8 HOURS AFTER CPA DAY 2 PRENATAL PHASE)
     Route: 042
  13. FILGRASTIM [Suspect]
     Active Substance: FILGRASTIM
     Indication: Supportive care
     Dosage: 10 MICROGRAM/KILOGRAM, (10 MICROGRAM/KILOGRAM,ON DAYS 11-16 POSTNATAL PHASE)
     Route: 058
  14. ETOPOSIDE [Suspect]
     Active Substance: ETOPOSIDE
     Indication: Burkitt^s lymphoma stage IV
     Dosage: 100 MILLIGRAM/SQ. METER, (100 MG/M2.OVER 1 HOUR ON DAYS 2-4 PRENATAL PHASE)
     Route: 042
  15. VINCRISTINE [Suspect]
     Active Substance: VINCRISTINE
     Indication: Product used for unknown indication
     Dosage: 2 MILLIGRAM, (2 MG, ON DAY 8)
     Route: 040
  16. CYCLOPHOSPHAMIDE [Suspect]
     Active Substance: CYCLOPHOSPHAMIDE
     Indication: Burkitt^s lymphoma stage IV
     Dosage: 200 MILLIGRAM/SQ. METER, (200 MG/M2 ON DAYS 1-5)
     Route: 042
  17. CYCLOPHOSPHAMIDE [Suspect]
     Active Substance: CYCLOPHOSPHAMIDE
     Dosage: 750 MILLIGRAM/SQ. METER, (750 MG/M2, OVER 1 HOUR ON DAY 2 )
     Route: 042
  18. CYTARABINE [Concomitant]
     Active Substance: CYTARABINE
     Indication: Prophylaxis
     Dosage: 150 MG/M2, OVER 1 HOUR EVERY 12 HOURS ON DAYS 111-12 POSTNATAL PHASE
     Route: 042
  19. CYTARABINE [Concomitant]
     Active Substance: CYTARABINE
     Dosage: 40 MILLIGRAM, (40 MG,ON DAYS 8 AND 12 POSTNATAL PHASE)
     Route: 037
  20. LEUCOVORIN CALCIUM [Concomitant]
     Active Substance: LEUCOVORIN CALCIUM
     Dosage: 50 MILLIGRAM, Q6H, (IF SERUM MTX LEVELS ARE: } 20 UMOL/L AT THE END OF MTX INFUSION (HOUR 24);} 1)

REACTIONS (5)
  - Biopsy ovary abnormal [Recovered/Resolved]
  - Amniocentesis abnormal [Recovered/Resolved]
  - Premature delivery [Unknown]
  - Maternal exposure during pregnancy [Unknown]
  - Off label use [Unknown]
